FAERS Safety Report 12468257 (Version 1)
Quarter: 2016Q2

REPORT INFORMATION
  Report Type: Spontaneous
  Country: EG (occurrence: EG)
  Receive Date: 20160615
  Receipt Date: 20160615
  Transmission Date: 20160815
  Serious: Yes (Hospitalization, Other)
  Sender: FDA-Public Use
  Company Number: EG-PFIZER INC-2016296781

PATIENT
  Age: 55 Year
  Sex: Male

DRUGS (4)
  1. CONTROLOC [Suspect]
     Active Substance: PANTOPRAZOLE SODIUM
     Indication: GASTROINTESTINAL HAEMORRHAGE
     Dosage: 80 MG, UNK
     Route: 042
  2. FLUXOPRIDE [Concomitant]
     Dosage: UNK
  3. CONTROLOC [Suspect]
     Active Substance: PANTOPRAZOLE SODIUM
     Dosage: 40 MG, PER 8 HOURS INFUSION FOR 72 HOURS
     Route: 042
  4. NEUROVIT /00056102/ [Concomitant]
     Dosage: UNK

REACTIONS (1)
  - Cerebral haemorrhage [Unknown]
